FAERS Safety Report 4500883-0 (Version None)
Quarter: 2004Q4

REPORT INFORMATION
  Report Type: 
  Country: None (occurrence: None)
  Receive Date: 20041109
  Receipt Date: 20041103
  Transmission Date: 20050328
  Serious: Yes (Hospitalization)
  Sender: FDA-Public Use
  Company Number: HQWYE756514OCT04

PATIENT
  Age: 64 Year
  Sex: Male
  Weight: 82.17 kg

DRUGS (8)
  1. RAPAMUNE [Suspect]
     Indication: IMMUNOSUPPRESSANT DRUG THERAPY
     Dosage: 5 MG 1 X PER 1 DAY, ORAL
     Route: 048
     Dates: start: 20040905
  2. RAPAMUNE [Suspect]
     Indication: PROPHYLAXIS AGAINST TRANSPLANT REJECTION
     Dosage: 5 MG 1 X PER 1 DAY, ORAL
     Route: 048
     Dates: start: 20040905
  3. CELLCEPT [Concomitant]
  4. PREDNISONE [Concomitant]
  5. LANTUS [Concomitant]
  6. COZAAR [Concomitant]
  7. TOPROL-XL [Concomitant]
  8. NORVASC [Concomitant]

REACTIONS (4)
  - LYMPHOCELE [None]
  - OBSTRUCTION [None]
  - PERINEPHRIC EFFUSION [None]
  - RENAL FAILURE ACUTE [None]
